FAERS Safety Report 4382499-2 (Version None)
Quarter: 2004Q2

REPORT INFORMATION
  Report Type: 
  Country: None (occurrence: None)
  Receive Date: 20040617
  Receipt Date: 20040604
  Transmission Date: 20050107
  Serious: Yes (Death)
  Sender: FDA-Public Use
  Company Number: 2004-DE-03195GD

PATIENT
  Sex: Male

DRUGS (4)
  1. CYCLOPHOSPHAMIDE [Suspect]
     Indication: NEPHROTIC SYNDROME
  2. DIPYRIDAMOLE [Suspect]
     Indication: NEPHROTIC SYNDROME
  3. PREDNISOLONE [Suspect]
     Indication: NEPHROTIC SYNDROME
  4. HEPARIN [Suspect]
     Indication: NEPHROTIC SYNDROME

REACTIONS (3)
  - DRUG INEFFECTIVE [None]
  - PERITONEAL DIALYSIS [None]
  - RENAL FAILURE [None]
